FAERS Safety Report 8943150 (Version 1)
Quarter: 2012Q4

REPORT INFORMATION
  Report Type: Spontaneous
  Country: US (occurrence: None)
  Receive Date: 20121121
  Receipt Date: 20121121
  Transmission Date: 20130627
  Serious: Yes (Hospitalization)
  Sender: FDA-Public Use
  Company Number: 001403471A

PATIENT
  Sex: Female

DRUGS (1)
  1. ANTIOXIDANT DAY CREME SPF 20 [Suspect]
     Dosage: daily dermal
     Dates: start: 20121005, end: 20121021

REACTIONS (5)
  - Skin burning sensation [None]
  - Rash pruritic [None]
  - Rash [None]
  - Rash [None]
  - Grand mal convulsion [None]
